FAERS Safety Report 25519378 (Version 1)
Quarter: 2025Q3

REPORT INFORMATION
  Report Type: Spontaneous
  Country: EU (occurrence: EU)
  Receive Date: 20250704
  Receipt Date: 20250704
  Transmission Date: 20251021
  Serious: Yes (Death)
  Sender: EXELIXIS
  Company Number: EU-IPSEN Group, Research and Development-2025-15079

PATIENT
  Sex: Female

DRUGS (1)
  1. CABOMETYX [Suspect]
     Active Substance: CABOZANTINIB S-MALATE
     Indication: Pancreatic neuroendocrine tumour

REACTIONS (4)
  - Death [Fatal]
  - General physical health deterioration [Unknown]
  - Disease progression [Unknown]
  - Off label use [Unknown]
